FAERS Safety Report 13540480 (Version 1)
Quarter: 2017Q2

REPORT INFORMATION
  Report Type: Spontaneous
  Country: AU (occurrence: AU)
  Receive Date: 20170512
  Receipt Date: 20170512
  Transmission Date: 20170830
  Serious: Yes (Death, Other)
  Sender: FDA-Public Use
  Company Number: AU-ALEMBIC PHARMACUETICALS LIMITED-2017SCAL000402

PATIENT

DRUGS (3)
  1. LAMOTRIGINE. [Suspect]
     Active Substance: LAMOTRIGINE
     Indication: PRODUCT USED FOR UNKNOWN INDICATION
     Dosage: 5 G, UNK
  2. QUETIAPINE FUMARATE. [Suspect]
     Active Substance: QUETIAPINE FUMARATE
     Indication: PRODUCT USED FOR UNKNOWN INDICATION
     Dosage: 3 G, UNK
  3. ZOPICLONE [Suspect]
     Active Substance: ZOPICLONE
     Indication: PRODUCT USED FOR UNKNOWN INDICATION
     Dosage: 75 MG, UNK

REACTIONS (9)
  - Cardiac arrest [Fatal]
  - Electrocardiogram QRS complex prolonged [Unknown]
  - Pulseless electrical activity [Fatal]
  - Distributive shock [Unknown]
  - Hypotension [Unknown]
  - Intentional overdose [Unknown]
  - Toxicity to various agents [Fatal]
  - Electrocardiogram ST segment depression [Unknown]
  - Electrocardiogram QT prolonged [Unknown]
